FAERS Safety Report 9973458 (Version 1)
Quarter: 2014Q1

REPORT INFORMATION
  Report Type: Spontaneous
  Country: US (occurrence: US)
  Receive Date: 20140306
  Receipt Date: 20140306
  Transmission Date: 20141002
  Serious: No
  Sender: FDA-Public Use
  Company Number: US-BAXTER-2014BAX009959

PATIENT
  Age: 55 Year
  Sex: Female
  Weight: 90 kg

DRUGS (4)
  1. GAMMAGARD LIQUID [Suspect]
     Indication: BONE MARROW TRANSPLANT
     Route: 042
     Dates: start: 2009
  2. BENADRYL [Concomitant]
     Indication: PREMEDICATION
     Dates: start: 20140221, end: 20140221
  3. TYLENOL [Concomitant]
     Indication: PREMEDICATION
     Dates: start: 20140221, end: 20140221
  4. HYDROCODONE [Concomitant]
     Indication: PREMEDICATION
     Dates: start: 20140221, end: 20140221

REACTIONS (6)
  - Headache [Recovered/Resolved]
  - Cough [Not Recovered/Not Resolved]
  - Influenza like illness [Recovered/Resolved]
  - Anxiety [Recovered/Resolved]
  - Dyspnoea [Not Recovered/Not Resolved]
  - Depression [Recovering/Resolving]
